FAERS Safety Report 21730438 (Version 1)
Quarter: 2022Q4

REPORT INFORMATION
  Report Type: Spontaneous
  Country: US (occurrence: US)
  Receive Date: 20221215
  Receipt Date: 20221215
  Transmission Date: 20230112
  Serious: No
  Sender: FDA-Public Use
  Company Number: US-ALK-ABELLO A/S-2022AA003582

PATIENT

DRUGS (9)
  1. RUMEX ACETOSELLA POLLEN\RUMEX CRISPUS POLLEN [Suspect]
     Active Substance: RUMEX ACETOSELLA POLLEN\RUMEX CRISPUS POLLEN
     Indication: Product used for unknown indication
     Dosage: UNK
     Dates: start: 20210714, end: 20220926
  2. WHEAT GRAIN [Suspect]
     Active Substance: WHEAT
     Indication: Product used for unknown indication
     Dosage: UNK
     Dates: start: 20210714, end: 20220926
  3. ALLERGENIC EXTRACT- PEANUT ARACHIS HYPOGAEA [Suspect]
     Active Substance: ALLERGENIC EXTRACT- PEANUT ARACHIS HYPOGAEA
     Indication: Product used for unknown indication
     Dosage: UNK
     Dates: start: 20210714, end: 20220926
  4. ALLERGENIC EXTRACTS [Suspect]
     Active Substance: ALLERGENIC EXTRACTS
     Indication: Product used for unknown indication
     Dosage: UNK
     Dates: start: 20210714, end: 20220926
  5. CARYA ILLINOINENSIS POLLEN [Suspect]
     Active Substance: CARYA ILLINOINENSIS POLLEN
     Indication: Product used for unknown indication
     Dosage: UNK
     Dates: start: 20210714, end: 20220926
  6. MIXED FISH [Suspect]
     Active Substance: COD, UNSPECIFIED\FLOUNDER, UNSPECIFIED\PACIFIC HALIBUT
     Indication: Product used for unknown indication
     Dosage: UNK
     Dates: start: 20210714, end: 20220926
  7. MIXED SHELLFISH [Suspect]
     Active Substance: CRAB LEG, UNSPECIFIED\LOBSTER, UNSPECIFIED\OYSTER, UNSPECIFIED\SHRIMP, UNSPECIFIED
     Indication: Product used for unknown indication
     Dosage: UNK
     Dates: start: 20210714, end: 20220926
  8. ALLERGENIC EXTRACTS [Suspect]
     Active Substance: ALLERGENIC EXTRACTS
     Indication: Product used for unknown indication
     Dosage: UNK
     Dates: start: 20210714, end: 20220926
  9. GLYCERIN [Concomitant]
     Active Substance: GLYCERIN
     Indication: Product used for unknown indication
     Dosage: UNK
     Dates: start: 20210714, end: 20220926

REACTIONS (2)
  - Off label use [Unknown]
  - Product use in unapproved indication [Unknown]
